FAERS Safety Report 6415390-8 (Version None)
Quarter: 2009Q4

REPORT INFORMATION
  Report Type: 
  Country: None (occurrence: None)
  Receive Date: 20091027
  Receipt Date: 20091016
  Transmission Date: 20100525
  Serious: Yes (Other)
  Sender: FDA-Public Use
  Company Number: PL-JNJFOC-20091005979

PATIENT
  Age: 24 Year
  Sex: Male

DRUGS (2)
  1. REMICADE [Suspect]
     Dosage: 2ND INFUSION
     Route: 042
  2. REMICADE [Suspect]
     Indication: ENTEROCUTANEOUS FISTULA
     Route: 042

REACTIONS (2)
  - MYCOBACTERIUM AVIUM COMPLEX INFECTION [None]
  - PNEUMONITIS [None]
